FAERS Safety Report 14325723 (Version 1)
Quarter: 2017Q4

REPORT INFORMATION
  Report Type: Spontaneous
  Country: CN (occurrence: CN)
  Receive Date: 20171226
  Receipt Date: 20171226
  Transmission Date: 20180321
  Serious: Yes (Death, Hospitalization)
  Sender: FDA-Public Use
  Company Number: PHHY2017CN187041

PATIENT
  Age: 27 Year
  Sex: Female

DRUGS (3)
  1. DEXAMETHASONE. [Suspect]
     Active Substance: DEXAMETHASONE
     Indication: IMMUNOSUPPRESSANT DRUG THERAPY
     Dosage: 10 MG, QD
     Route: 065
  2. ETOPOSIDE. [Suspect]
     Active Substance: ETOPOSIDE
     Indication: IMMUNOSUPPRESSANT DRUG THERAPY
     Dosage: 270 MG, QW
     Route: 065
  3. RITUXIMAB. [Suspect]
     Active Substance: RITUXIMAB
     Indication: IMMUNOSUPPRESSANT DRUG THERAPY
     Dosage: 370 MG/M2, QW
     Route: 065

REACTIONS (7)
  - Renal injury [Unknown]
  - Liver function test decreased [Unknown]
  - Multiple organ dysfunction syndrome [Fatal]
  - Histiocytosis haematophagic [Unknown]
  - Disease progression [Unknown]
  - Maternal exposure during pregnancy [Unknown]
  - Respiratory distress [Unknown]
